FAERS Safety Report 26177471 (Version 1)
Quarter: 2025Q4

REPORT INFORMATION
  Report Type: Spontaneous
  Country: CN (occurrence: CN)
  Receive Date: 20251219
  Receipt Date: 20251219
  Transmission Date: 20260118
  Serious: Yes (Hospitalization, Other)
  Sender: BAXTER
  Company Number: None

PATIENT
  Age: 2 Year
  Sex: Male
  Weight: 14.5 kg

DRUGS (5)
  1. CYCLOPHOSPHAMIDE [Suspect]
     Active Substance: CYCLOPHOSPHAMIDE
     Indication: Acute lymphocytic leukaemia
     Dosage: 0.6 G, QD
     Route: 041
     Dates: start: 20250821, end: 20250821
  2. SODIUM CHLORIDE [Suspect]
     Active Substance: SODIUM CHLORIDE
     Dosage: 250 ML, QD WITH CYCLOPHOSPHAMIDE FOR INJECTION 0.60 G (ONCE, D1)
     Route: 041
     Dates: start: 20250821, end: 20250821
  3. DEXTROSE\SODIUM CHLORIDE [Suspect]
     Active Substance: DEXTROSE\SODIUM CHLORIDE
     Dosage: 250 ML, BID WITH CYTARABINE
     Route: 041
     Dates: start: 20250821, end: 20250823
  4. CYTARABINE [Suspect]
     Active Substance: CYTARABINE
     Indication: Acute lymphocytic leukaemia
     Dosage: 0.6 G, BID
     Route: 041
     Dates: start: 20250821, end: 20250823
  5. MERCAPTOPURINE [Suspect]
     Active Substance: MERCAPTOPURINE
     Indication: Acute lymphocytic leukaemia
     Dosage: 30 MG, QD (D1-D7)
     Route: 048
     Dates: start: 20250821, end: 20250827

REACTIONS (1)
  - Myelosuppression [Recovering/Resolving]

NARRATIVE: CASE EVENT DATE: 20250828
